FAERS Safety Report 8161285-1 (Version None)
Quarter: 2012Q1

REPORT INFORMATION
  Report Type: 
  Country: None (occurrence: None)
  Receive Date: 20120224
  Receipt Date: 20120215
  Transmission Date: 20120608
  Serious: Yes (Other)
  Sender: FDA-Public Use
  Company Number: CA-JNJFOC-20120209891

PATIENT
  Sex: Female
  Weight: 59 kg

DRUGS (5)
  1. REMICADE [Suspect]
     Dosage: THIRD LOADING DOSE
     Route: 042
     Dates: start: 20120215
  2. REMICADE [Suspect]
     Indication: COLITIS ULCERATIVE
     Route: 042
     Dates: start: 20120104
  3. AZATHIOPRINE [Concomitant]
     Route: 065
  4. MESALAMINE [Concomitant]
     Route: 065
  5. ACETAMINOPHEN [Concomitant]
     Dosage: 3(UNITS UNSPECIFIED) PRN
     Route: 065

REACTIONS (2)
  - BURNS SECOND DEGREE [None]
  - FALL [None]
